FAERS Safety Report 17117704 (Version 1)
Quarter: 2019Q4

REPORT INFORMATION
  Report Type: Report from Study
  Country: US (occurrence: US)
  Receive Date: 20191205
  Receipt Date: 20191205
  Transmission Date: 20200122
  Serious: Yes (Life-Threatening, Hospitalization, Other)
  Sender: FDA-Public Use
  Company Number: US-BRISTOL-MYERS SQUIBB COMPANY-BMS-2019-116534

PATIENT
  Age: 75 Year
  Sex: Male
  Weight: 83.28 kg

DRUGS (4)
  1. NIVOLUMAB [Suspect]
     Active Substance: NIVOLUMAB
     Indication: BLADDER CANCER
     Dosage: 83 MILLIGRAM
     Route: 065
     Dates: start: 20191016
  2. IPILIMUMAB [Suspect]
     Active Substance: IPILIMUMAB
     Indication: BLADDER CANCER
     Dosage: 250 MILLIGRAM
     Route: 065
     Dates: start: 20191016
  3. CABOZANTINIB [Suspect]
     Active Substance: CABOZANTINIB
     Indication: BLADDER CANCER
     Dosage: 20 MILLIGRAM
     Route: 065
     Dates: start: 20191025
  4. CEFEPIME DIHYDROCHLORIDE MONOHYDRATE [Suspect]
     Active Substance: CEFEPIME HYDROCHLORIDE
     Indication: PNEUMONIA
     Dosage: UNK
     Route: 065
     Dates: start: 201910

REACTIONS (7)
  - Delirium [Recovering/Resolving]
  - Meningioma [Unknown]
  - Adrenal insufficiency [Unknown]
  - Vomiting [Recovered/Resolved with Sequelae]
  - Urinary tract infection [Unknown]
  - Pneumonia [Unknown]
  - Hypertensive urgency [Unknown]

NARRATIVE: CASE EVENT DATE: 20191028
